FAERS Safety Report 10589219 (Version 3)
Quarter: 2015Q2

REPORT INFORMATION
  Report Type: Spontaneous
  Country: CA (occurrence: CA)
  Receive Date: 20141118
  Receipt Date: 20150401
  Transmission Date: 20150821
  Serious: Yes (Death, Hospitalization)
  Sender: FDA-Public Use
  Company Number: CA-JNJFOC-20141109080

PATIENT

DRUGS (14)
  1. ANTIDEPRESSANTS [Concomitant]
     Active Substance: UNSPECIFIED INGREDIENT
  2. DOPAMINE [Concomitant]
     Active Substance: DOPAMINE\DOPAMINE HYDROCHLORIDE
  3. URINARY ANTISPASMODICS [Concomitant]
  4. RANITIDINE HYDROCHLORIDE. [Suspect]
     Active Substance: RANITIDINE HYDROCHLORIDE
     Indication: GASTROOESOPHAGEAL REFLUX DISEASE
     Route: 048
  5. ANTICONVULSANTS [Concomitant]
     Active Substance: UNSPECIFIED INGREDIENT
  6. BENZODIAZEPINE NOS [Concomitant]
     Active Substance: BENZODIAZEPINE
  7. MUSCLE RELAXANT [Concomitant]
     Active Substance: UNSPECIFIED INGREDIENT
  8. OPIOIDS [Concomitant]
     Active Substance: UNSPECIFIED INGREDIENT
  9. FAMOTIDINE. [Suspect]
     Active Substance: FAMOTIDINE
     Indication: GASTROOESOPHAGEAL REFLUX DISEASE
     Route: 048
  10. ANTIDIABETIC MEDICATION [Concomitant]
     Active Substance: UNSPECIFIED INGREDIENT
  11. RANITIDINE HYDROCHLORIDE. [Suspect]
     Active Substance: RANITIDINE HYDROCHLORIDE
     Indication: GASTROOESOPHAGEAL REFLUX DISEASE
     Route: 048
  12. ANTIPSYCHOTICS [Concomitant]
     Active Substance: UNSPECIFIED INGREDIENT
  13. FAMOTIDINE. [Suspect]
     Active Substance: FAMOTIDINE
     Indication: GASTROOESOPHAGEAL REFLUX DISEASE
     Route: 048
  14. BARBITURATES [Concomitant]
     Active Substance: UNSPECIFIED INGREDIENT

REACTIONS (2)
  - Mental status changes [Unknown]
  - Delirium [Fatal]
